FAERS Safety Report 21036644 (Version 1)
Quarter: 2022Q3

REPORT INFORMATION
  Report Type: Spontaneous
  Country: NL (occurrence: NL)
  Receive Date: 20220702
  Receipt Date: 20220702
  Transmission Date: 20221027
  Serious: Yes (Other)
  Sender: FDA-Public Use
  Company Number: None

PATIENT
  Age: 77 Year
  Sex: Male
  Weight: 86 kg

DRUGS (6)
  1. ATORVASTATIN [Suspect]
     Active Substance: ATORVASTATIN
     Indication: Hypercholesterolaemia
     Dosage: 1X PER DAY  ,FORM STRENGTH : 40MG / BRAND NAME NOT SPECIFIED , THERAPY END DATE : ASKU
     Dates: start: 202005
  2. BARNIDIPINE [Concomitant]
     Active Substance: BARNIDIPINE
     Indication: Product used for unknown indication
     Dosage: MODIFIED RELEASE CAPSULE ,10 MG (MILLIGRAM) , CAPSULE MGA 10MG / BRAND NAME NOT SPECIFIED , FORM ST
  3. ASPIRIN [Concomitant]
     Active Substance: ASPIRIN
     Indication: Product used for unknown indication
     Dosage: TABLET,FORM STRENGTH : 80 MG (MILLIGRAM) ,ACETYLSALICYLZUUR / BRAND NAME NOT SPECIFIED ,THERAPY STAR
  4. PANTOPRAZOLE SODIUM [Concomitant]
     Active Substance: PANTOPRAZOLE SODIUM
     Indication: Product used for unknown indication
     Dosage: POWDER INJECTION FLUID, FORM STRENGTH : 40 MG (MILLIGRAM) ,  BRAND NAME NOT SPECIFIED,THERAPY START
  5. ATENOLOL [Concomitant]
     Active Substance: ATENOLOL
     Indication: Product used for unknown indication
     Dosage: TABLET, FORM STRENGTH : 100 MG (MILLIGRAM) ,  BRAND NAME NOT SPECIFIED ,THERAPY START DATE AND END D
  6. LOSARTAN [Concomitant]
     Active Substance: LOSARTAN
     Indication: Product used for unknown indication
     Dosage: FILM-COATED TABLET , FORM STRENGTH :50 MG (MILLIGRAM) ,TABLET FO 50MG / BRAND NAME NOT SPECIFIED ,TH

REACTIONS (2)
  - Muscle rupture [Recovering/Resolving]
  - Muscle spasms [Unknown]

NARRATIVE: CASE EVENT DATE: 20220531
